FAERS Safety Report 9004057 (Version 2)
Quarter: 2013Q1

REPORT INFORMATION
  Report Type: Spontaneous
  Country: US (occurrence: US)
  Receive Date: 20130109
  Receipt Date: 20130121
  Transmission Date: 20140127
  Serious: Yes (Death, Other)
  Sender: FDA-Public Use
  Company Number: US-BIOGENIDEC-2013BI000413

PATIENT
  Age: 45 Year
  Sex: Female

DRUGS (24)
  1. TYSABRI [Suspect]
     Indication: MULTIPLE SCLEROSIS
     Route: 042
     Dates: start: 20100910, end: 20121130
  2. TYSABRI [Suspect]
     Indication: MULTIPLE SCLEROSIS
     Route: 042
     Dates: start: 20080530, end: 20090508
  3. ADVAIR DISKUS 250/50 [Concomitant]
  4. ALBUTEROL [Concomitant]
  5. ASPIRIN [Concomitant]
  6. BACLOFEN [Concomitant]
  7. BETHANECHOL [Concomitant]
  8. CYMBALTA [Concomitant]
  9. ENDOCET [Concomitant]
  10. GABAPENTIN [Concomitant]
  11. LISINOPRIL [Concomitant]
  12. LYRICA [Concomitant]
  13. MULTIVITAMIN [Concomitant]
  14. NEBULIZER [Concomitant]
  15. ROPINIROLE [Concomitant]
  16. SENNA S TAB [Concomitant]
  17. SEROQUEL [Concomitant]
  18. SIMVASTATIN [Concomitant]
  19. SINGULAIR [Concomitant]
  20. SPIRIVA [Concomitant]
  21. TRAMADOL [Concomitant]
  22. VITAMIN D [Concomitant]
  23. VITAMIN D [Concomitant]
  24. ZANAFLEX [Concomitant]

REACTIONS (5)
  - Breast cancer [Recovered/Resolved]
  - Herpes zoster [Not Recovered/Not Resolved]
  - Spinal osteoarthritis [Unknown]
  - Neurogenic bladder [Unknown]
  - Death [Fatal]
